FAERS Safety Report 7888963-3 (Version None)
Quarter: 2011Q4

REPORT INFORMATION
  Report Type: 
  Country: None (occurrence: None)
  Receive Date: 20111103
  Receipt Date: 20111026
  Transmission Date: 20120403
  Serious: Yes (Hospitalization, Other)
  Sender: FDA-Public Use
  Company Number: PHHY2011US54148

PATIENT
  Sex: Female

DRUGS (4)
  1. EXJADE [Suspect]
     Dosage: 2000 MG, QD
     Route: 048
  2. EXJADE [Suspect]
     Dosage: 09 DF, A DAY
     Route: 048
  3. EXJADE [Suspect]
     Dosage: 2250 MG, QD
  4. EXJADE [Suspect]
     Dosage: 1000 MG, QD
     Route: 048

REACTIONS (5)
  - BACK PAIN [None]
  - MALAISE [None]
  - PAIN IN EXTREMITY [None]
  - ABDOMINAL PAIN [None]
  - BACTERIAL INFECTION [None]
